FAERS Safety Report 6145278-1 (Version None)
Quarter: 2009Q2

REPORT INFORMATION
  Report Type: 
  Country: None (occurrence: None)
  Receive Date: 20090406
  Receipt Date: 20090326
  Transmission Date: 20091009
  Serious: Yes (Death, Hospitalization)
  Sender: FDA-Public Use
  Company Number: US-BAXTER-2009BH004319

PATIENT
  Age: 63 Year
  Sex: Male

DRUGS (1)
  1. DIANEAL [Suspect]
     Indication: PERITONEAL DIALYSIS
     Route: 033

REACTIONS (4)
  - CARDIAC FAILURE CONGESTIVE [None]
  - GAIT DISTURBANCE [None]
  - SKIN GRAFT [None]
  - SKIN LESION [None]
